FAERS Safety Report 6156413-3 (Version None)
Quarter: 2009Q2

REPORT INFORMATION
  Report Type: 
  Country: None (occurrence: None)
  Receive Date: 20090416
  Receipt Date: 20090409
  Transmission Date: 20091009
  Serious: No
  Sender: FDA-Public Use
  Company Number: FR-JNJFOC-20081001166

PATIENT
  Sex: Female
  Weight: 107 kg

DRUGS (3)
  1. DURAGESIC-100 [Suspect]
     Dosage: TWO PATCHES OF 12.5 UG/HR TO MAKE A DOSE OF 25 UG/HR
     Route: 062
  2. DURAGESIC-100 [Suspect]
     Route: 062
  3. DURAGESIC-100 [Suspect]
     Indication: PAIN
     Route: 062

REACTIONS (3)
  - HYPERHIDROSIS [None]
  - INCORRECT DRUG ADMINISTRATION DURATION [None]
  - PRODUCT QUALITY ISSUE [None]
